FAERS Safety Report 6161890-8 (Version None)
Quarter: 2009Q2

REPORT INFORMATION
  Report Type: 
  Country: None (occurrence: None)
  Receive Date: 20090421
  Receipt Date: 20090410
  Transmission Date: 20091009
  Serious: Yes (Hospitalization)
  Sender: FDA-Public Use
  Company Number: B0569503A

PATIENT
  Age: 82 Year
  Sex: Female

DRUGS (10)
  1. REQUIP [Suspect]
     Indication: DRUG USE FOR UNKNOWN INDICATION
     Dosage: 10MG PER DAY
     Route: 048
     Dates: end: 20090310
  2. ZOLPIDEM TARTRATE [Suspect]
     Dosage: 10MG PER DAY
     Route: 048
     Dates: end: 20090310
  3. CACIT [Concomitant]
     Route: 065
  4. VITAMIN D3 [Concomitant]
     Route: 065
  5. DIFFU K [Concomitant]
     Route: 065
  6. DOLIPRANE [Concomitant]
     Route: 065
  7. FORLAX [Concomitant]
     Route: 065
  8. FUROSEMIDE [Concomitant]
     Route: 065
  9. TRIATEC [Concomitant]
     Route: 065
  10. LEVOTHYROX [Concomitant]
     Route: 065

REACTIONS (8)
  - ASTHENIA [None]
  - CONFUSIONAL STATE [None]
  - DISORIENTATION [None]
  - DISTURBANCE IN ATTENTION [None]
  - GENERAL PHYSICAL HEALTH DETERIORATION [None]
  - HALLUCINATION [None]
  - MUSCULAR WEAKNESS [None]
  - SOMNOLENCE [None]
